FAERS Safety Report 9193622 (Version 1)
Quarter: 2013Q1

REPORT INFORMATION
  Report Type: Spontaneous
  Country: US (occurrence: None)
  Receive Date: 20130325
  Receipt Date: 20130325
  Transmission Date: 20140127
  Serious: Yes (Life-Threatening, Hospitalization)
  Sender: FDA-Public Use
  Company Number: None

PATIENT
  Age: 18 Year
  Sex: Female
  Weight: 104.33 kg

DRUGS (3)
  1. VIORELE [Suspect]
     Indication: MENSTRUATION IRREGULAR
     Dosage: 1 PILL
     Route: 048
     Dates: start: 20121231, end: 20130217
  2. VIORELE [Suspect]
     Indication: DYSMENORRHOEA
     Dosage: 1 PILL
     Route: 048
     Dates: start: 20121231, end: 20130217
  3. KUMADIN [Concomitant]

REACTIONS (5)
  - Feeling abnormal [None]
  - Chest pain [None]
  - Chest discomfort [None]
  - Pulmonary thrombosis [None]
  - Product substitution issue [None]
